FAERS Safety Report 20028500 (Version 2)
Quarter: 2021Q4

REPORT INFORMATION
  Report Type: Spontaneous
  Country: CO (occurrence: CO)
  Receive Date: 20211103
  Receipt Date: 20211112
  Transmission Date: 20220303
  Serious: Yes (Other)
  Sender: FDA-Public Use
  Company Number: CO-RECORDATI RARE DISEASE INC.-2021004449

PATIENT
  Age: 17 Year
  Sex: Female
  Weight: 68 kg

DRUGS (5)
  1. PANHEMATIN [Suspect]
     Active Substance: HEMIN
     Indication: Porphyria acute
     Dosage: 350 MILLIGRAM, QW
     Route: 042
     Dates: start: 20200630
  2. PANHEMATIN [Suspect]
     Active Substance: HEMIN
     Indication: Prophylaxis
  3. METHADONE [Concomitant]
     Active Substance: METHADONE HYDROCHLORIDE
     Indication: Pain management
     Dosage: 10 MILLIGRAM, Q8H
     Route: 065
     Dates: start: 20200530
  4. PREGABALIN [Concomitant]
     Active Substance: PREGABALIN
     Indication: Neuralgia
     Dosage: 150 MILLIGRAM, Q6H
     Route: 065
     Dates: start: 20200530
  5. PREGABALIN [Concomitant]
     Active Substance: PREGABALIN
     Indication: Seizure

REACTIONS (4)
  - Syncope [Not Recovered/Not Resolved]
  - Decreased appetite [Not Recovered/Not Resolved]
  - Vomiting [Not Recovered/Not Resolved]
  - Abdominal pain [Not Recovered/Not Resolved]

NARRATIVE: CASE EVENT DATE: 20200630
